FAERS Safety Report 24921750 (Version 1)
Quarter: 2025Q1

REPORT INFORMATION
  Report Type: Report from Study
  Country: US (occurrence: US)
  Receive Date: 20250204
  Receipt Date: 20250204
  Transmission Date: 20250409
  Serious: Yes (Other)
  Sender: NOVARTIS
  Company Number: US-002147023-NVSC2024US209956

PATIENT
  Sex: Female

DRUGS (2)
  1. KESIMPTA [Suspect]
     Active Substance: OFATUMUMAB
     Indication: Product used for unknown indication
     Route: 065
     Dates: start: 20241023
  2. KESIMPTA [Suspect]
     Active Substance: OFATUMUMAB
     Route: 065

REACTIONS (12)
  - Nephrolithiasis [Unknown]
  - Influenza like illness [Unknown]
  - Nausea [Unknown]
  - Fatigue [Recovering/Resolving]
  - Incorrect dose administered [Unknown]
  - Hyperhidrosis [Unknown]
  - Vertigo [Recovering/Resolving]
  - Chest discomfort [Unknown]
  - Nervousness [Unknown]
  - Condition aggravated [Unknown]
  - Arthropathy [Unknown]
  - Palpitations [Recovering/Resolving]
